FAERS Safety Report 16623799 (Version 4)
Quarter: 2021Q4

REPORT INFORMATION
  Report Type: Report from Study
  Country: US (occurrence: None)
  Receive Date: 20190724
  Receipt Date: 20211116
  Transmission Date: 20220303
  Serious: Yes (Death, Other)
  Sender: FDA-Public Use
  Company Number: US-ROCHE-2207928

PATIENT
  Age: 64 Year
  Sex: Male
  Weight: 62.4 kg

DRUGS (3)
  1. PIRFENIDONE [Suspect]
     Active Substance: PIRFENIDONE
     Indication: Non-small cell lung cancer
     Dosage: 08 FULL CYCLES OF PIRFENIDONE LAST KNOWN DOSE ON 25/SEP/2018.
     Route: 048
  2. CARBOPLATIN [Suspect]
     Active Substance: CARBOPLATIN
     Indication: Non-small cell lung cancer
     Dosage: 04 DOSES IF CARBOPLATIN LAST DOSE ON 8/JUN/2018.?AREA UNDER THE CURVE (AUC) 6 ON DAY 1 OF A 21-DAY C
     Route: 065
  3. PEMETREXED [Suspect]
     Active Substance: PEMETREXED
     Indication: Non-small cell lung cancer
     Dosage: 08 DOSES OF PEMETREXED LAST DOSE ON 7/SEP/2018?500 MG/M^2 ON DAY 1 OF A 21-DAY CYCLE FOR 4 - 6 CYCLE
     Route: 065

REACTIONS (6)
  - Seizure [Fatal]
  - Pneumonia streptococcal [Fatal]
  - Acute respiratory failure [Fatal]
  - Cardiac arrest [Fatal]
  - Atrial fibrillation [Fatal]
  - Superior vena cava syndrome [Recovered/Resolved with Sequelae]

NARRATIVE: CASE EVENT DATE: 20181016
